FAERS Safety Report 14989666 (Version 1)
Quarter: 2018Q2

REPORT INFORMATION
  Report Type: Spontaneous
  Country: FR (occurrence: FR)
  Receive Date: 20180608
  Receipt Date: 20180608
  Transmission Date: 20180711
  Serious: Yes (Death, Other)
  Sender: FDA-Public Use
  Company Number: PHHY2018FR013442

PATIENT
  Age: 66 Year
  Sex: Male

DRUGS (1)
  1. VANCOMYCIN HYDROCHLORIDE. [Suspect]
     Active Substance: VANCOMYCIN HYDROCHLORIDE
     Indication: ARTHRITIS BACTERIAL
     Dosage: UNK
     Route: 065

REACTIONS (2)
  - Acute kidney injury [Fatal]
  - Myeloma cast nephropathy [Fatal]
